FAERS Safety Report 9911594 (Version 3)
Quarter: 2014Q1

REPORT INFORMATION
  Report Type: Spontaneous
  Country: CA (occurrence: CA)
  Receive Date: 20140219
  Receipt Date: 20140225
  Transmission Date: 20141002
  Serious: Yes (Hospitalization)
  Sender: FDA-Public Use
  Company Number: PHHY2014CA016218

PATIENT
  Sex: Female

DRUGS (2)
  1. CLOZAPINE [Suspect]
     Dosage: UNK UKN, UNK
  2. RISPERIDONE [Suspect]
     Dosage: UNK UKN, UNK

REACTIONS (7)
  - Delirium [Unknown]
  - Confusional state [Unknown]
  - Renal failure [Unknown]
  - Blood electrolytes abnormal [Unknown]
  - Blood creatine phosphokinase increased [Unknown]
  - Vomiting [Unknown]
  - Diarrhoea [Unknown]
